FAERS Safety Report 4620058-4 (Version None)
Quarter: 2005Q1

REPORT INFORMATION
  Report Type: 
  Country: None (occurrence: None)
  Receive Date: 20050324
  Receipt Date: 20050318
  Transmission Date: 20050727
  Serious: Yes (Death, Hospitalization)
  Sender: FDA-Public Use
  Company Number: 2005046979

PATIENT
  Age: 56 Year
  Sex: Female
  Weight: 84 kg

DRUGS (8)
  1. DOXORUBICIN HCL [Suspect]
     Indication: BREAST CANCER
     Dosage: 95 MG (INTERVAL: EVERY 3 WEEKS), INTRAVENOUS
     Route: 042
     Dates: start: 20050221, end: 20050221
  2. PEMETREXED (PEMETREXED) [Suspect]
     Indication: BREAST CANCER
     Dosage: 950 MG (INTERVAL: EVERY 3 WEEKS), INTRAVENOUS
     Route: 042
     Dates: start: 20050221, end: 20050221
  3. AMITRIPTYLINE HCL [Concomitant]
  4. FOLIC ACID [Concomitant]
  5. CYANOCOBALAMIN [Concomitant]
  6. DEXAMETHASONE [Concomitant]
  7. RISPERDAL [Concomitant]
  8. PRIDINOL (PRIDINOL) [Concomitant]

REACTIONS (13)
  - ABDOMINAL PAIN [None]
  - BLOOD SODIUM DECREASED [None]
  - BLOOD UREA ABNORMAL [None]
  - DIARRHOEA [None]
  - DRUG TOXICITY [None]
  - HYPOTONIA [None]
  - LEUKOPENIA [None]
  - NEUTROPENIA [None]
  - PERFORMANCE STATUS DECREASED [None]
  - PLATELET COUNT DECREASED [None]
  - PYREXIA [None]
  - RED BLOOD CELL COUNT ABNORMAL [None]
  - WHITE BLOOD CELL COUNT ABNORMAL [None]
